FAERS Safety Report 14449453 (Version 3)
Quarter: 2018Q1

REPORT INFORMATION
  Report Type: Report from Study
  Country: US (occurrence: US)
  Receive Date: 20180127
  Receipt Date: 20180302
  Transmission Date: 20180509
  Serious: No
  Sender: FDA-Public Use
  Company Number: PHEH2018US003331

PATIENT
  Sex: Female

DRUGS (1)
  1. ENTRESTO [Suspect]
     Active Substance: SACUBITRIL\VALSARTAN
     Indication: PRODUCT USED FOR UNKNOWN INDICATION
     Dosage: 1.5 DF (SACUBITRIL 49/VALSARTAN 51), BID (1/2 IN MORNING AND WHOLE PILL NIGHT)
     Route: 048

REACTIONS (4)
  - Dizziness [Unknown]
  - Pain in extremity [Recovering/Resolving]
  - Wrong technique in product usage process [Unknown]
  - Drug prescribing error [Unknown]
